FAERS Safety Report 7384741-2 (Version None)
Quarter: 2011Q1

REPORT INFORMATION
  Report Type: 
  Country: None (occurrence: None)
  Receive Date: 20110330
  Receipt Date: 20110318
  Transmission Date: 20110831
  Serious: Yes (Hospitalization, Other)
  Sender: FDA-Public Use
  Company Number: PHHY2011FR22473

PATIENT
  Sex: Male

DRUGS (9)
  1. AMLOC [Concomitant]
     Dosage: UNK
     Dates: start: 20110202
  2. FLIXOTIDE [Suspect]
     Indication: RESPIRATORY DISORDER
     Dosage: 500 UG, QD
  3. VOLTAREN [Suspect]
     Dosage: UNK
     Dates: end: 20110202
  4. HYDREA [Suspect]
     Indication: POLYCYTHAEMIA VERA
     Dosage: 500 MG, DAILY
     Route: 048
     Dates: start: 20050101, end: 20110201
  5. TAREG [Suspect]
     Dosage: 80 MG, UNK
     Dates: start: 20110209
  6. PHENOXYMETHYL PENICILLIN [Suspect]
     Indication: POLYCYTHAEMIA VERA
     Dosage: 1 DF, BID
  7. TAREG [Suspect]
     Dosage: 80 MG, UNK
     Dates: end: 20110202
  8. ALLOPURINOL [Suspect]
     Dosage: 1 DF, QD
  9. MOVIPREP [Suspect]
     Dosage: 1 DF, QD

REACTIONS (15)
  - RASH MACULO-PAPULAR [None]
  - ERYTHEMA [None]
  - RENAL FAILURE ACUTE [None]
  - BODY TEMPERATURE INCREASED [None]
  - THROMBOPHLEBITIS SUPERFICIAL [None]
  - FOLLICULITIS [None]
  - INTERNATIONAL NORMALISED RATIO INCREASED [None]
  - PHLEBITIS [None]
  - HAEMOGLOBIN INCREASED [None]
  - SEPSIS [None]
  - EAR INFECTION [None]
  - URINARY TRACT INFECTION [None]
  - PAIN IN EXTREMITY [None]
  - RASH [None]
  - GOUT [None]
